FAERS Safety Report 6366055-2 (Version None)
Quarter: 2009Q3

REPORT INFORMATION
  Report Type: 
  Country: None (occurrence: None)
  Receive Date: 20090919
  Receipt Date: 20090827
  Transmission Date: 20100115
  Serious: No
  Sender: FDA-Public Use
  Company Number: US-ABBOTT-09P-163-0594173-00

PATIENT
  Sex: Male
  Weight: 81.72 kg

DRUGS (4)
  1. HUMIRA [Suspect]
     Indication: ANKYLOSING SPONDYLITIS
     Route: 058
     Dates: start: 20081001, end: 20090301
  2. HUMIRA [Suspect]
     Route: 058
     Dates: start: 20090301, end: 20090601
  3. HUMIRA [Suspect]
     Route: 058
     Dates: start: 20090601, end: 20090601
  4. MOBIC [Concomitant]
     Indication: PAIN MANAGEMENT
     Dates: start: 20090101

REACTIONS (3)
  - BACK PAIN [None]
  - DRUG INEFFECTIVE [None]
  - INFLUENZA LIKE ILLNESS [None]
